FAERS Safety Report 13695764 (Version 1)
Quarter: 2017Q2

REPORT INFORMATION
  Report Type: Spontaneous
  Country: FR (occurrence: FR)
  Receive Date: 20170627
  Receipt Date: 20170627
  Transmission Date: 20170830
  Serious: Yes (Other)
  Sender: FDA-Public Use
  Company Number: PHHY2017FR091225

PATIENT
  Age: 64 Year
  Sex: Male

DRUGS (3)
  1. PIPERACILLIN [Suspect]
     Active Substance: PIPERACILLIN
     Indication: BACTERIAL INFECTION
     Route: 065
  2. PIPERACILLIN AND TAZOBACTAM [Suspect]
     Active Substance: PIPERACILLIN SODIUM\TAZOBACTAM SODIUM
     Indication: BACTERIAL INFECTION
     Route: 065
     Dates: start: 2007
  3. IMIPENEM [Suspect]
     Active Substance: IMIPENEM
     Indication: BACTERIAL INFECTION
     Route: 065
     Dates: start: 200901

REACTIONS (1)
  - Drug resistance [Unknown]
